FAERS Safety Report 5279788-6 (Version None)
Quarter: 2007Q1

REPORT INFORMATION
  Report Type: 
  Country: None (occurrence: None)
  Receive Date: 20061220
  Receipt Date: 20060505
  Transmission Date: 20070707
  Serious: Yes (Life-Threatening, Hospitalization)
  Sender: FDA-Public Use
  Company Number: 253003

PATIENT
  Sex: Female

DRUGS (2)
  1. NOVOLIN R [Suspect]
     Indication: INSULIN-REQUIRING TYPE II DIABETES MELLITUS
     Dosage: SLIDING SCALE, SUBCUTANEOUS
     Route: 058
     Dates: start: 20060501
  2. NOVOLOG MIX 70/30 [Suspect]
     Indication: INSULIN-REQUIRING TYPE II DIABETES MELLITUS
     Dosage: 64 IU, QD, SUBCUTANEOUS
     Route: 058
     Dates: end: 20060501

REACTIONS (2)
  - BLOOD GLUCOSE INCREASED [None]
  - HYPERSENSITIVITY [None]
